FAERS Safety Report 17233135 (Version 10)
Quarter: 2020Q4

REPORT INFORMATION
  Report Type: Spontaneous
  Country: JP (occurrence: JP)
  Receive Date: 20200104
  Receipt Date: 20201106
  Transmission Date: 20210113
  Serious: Yes (Death, Hospitalization, Other)
  Sender: FDA-Public Use
  Company Number: JP-AMGEN-JPNNI2019123686

PATIENT
  Age: 25 Year
  Sex: Female

DRUGS (11)
  1. VFEND [Concomitant]
     Active Substance: VORICONAZOLE
  2. FUNGUARD [Suspect]
     Active Substance: MICAFUNGIN SODIUM
     Indication: PRODUCT USED FOR UNKNOWN INDICATION
     Dosage: 50 MILLIGRAM, QD
     Route: 065
  3. PREDONINE [Concomitant]
     Active Substance: PREDNISOLONE
     Dosage: 40 MILLIGRAM
     Dates: end: 202003
  4. PREVYMIS [Concomitant]
     Active Substance: LETERMOVIR
     Indication: PROPHYLAXIS
  5. CEFEPIME [Concomitant]
     Active Substance: CEFEPIME HYDROCHLORIDE
     Indication: PROPHYLAXIS
  6. PROGRAF [Suspect]
     Active Substance: TACROLIMUS
     Indication: PROPHYLAXIS
  7. NEORAL [Concomitant]
     Active Substance: CYCLOSPORINE
     Dosage: UNK
  8. BLINCYTO [Suspect]
     Active Substance: BLINATUMOMAB
     Indication: ACUTE LYMPHOCYTIC LEUKAEMIA RECURRENT
     Dosage: UNK
     Route: 065
     Dates: start: 201906, end: 201908
  9. TEICOPLANIN [Concomitant]
     Active Substance: TEICOPLANIN
     Indication: PROPHYLAXIS
  10. PROGRAF [Suspect]
     Active Substance: TACROLIMUS
     Indication: ALLOGENIC STEM CELL TRANSPLANTATION
     Dosage: 0.4 MILLIGRAM, 25-FOLD DOSE
     Route: 065
     Dates: end: 2020
  11. ZOVIRAX [Concomitant]
     Active Substance: ACYCLOVIR
     Indication: HERPES ZOSTER

REACTIONS (18)
  - Therapeutic product effect decreased [Unknown]
  - Decreased immune responsiveness [Unknown]
  - Feeding disorder [Unknown]
  - Gastrointestinal haemorrhage [Unknown]
  - Gastrointestinal erosion [Unknown]
  - Acute lymphocytic leukaemia recurrent [Fatal]
  - Lymphocyte count decreased [Unknown]
  - Alopecia [Unknown]
  - Haematemesis [Unknown]
  - Visual impairment [Unknown]
  - Gait inability [Unknown]
  - Melaena [Unknown]
  - Mucormycosis [Fatal]
  - Constipation [Unknown]
  - Platelet count decreased [Unknown]
  - Laryngeal inflammation [Unknown]
  - Cytomegalovirus infection [Fatal]
  - Decreased appetite [Unknown]

NARRATIVE: CASE EVENT DATE: 2019
